FAERS Safety Report 18906882 (Version 5)
Quarter: 2021Q3

REPORT INFORMATION
  Report Type: Spontaneous
  Country: US (occurrence: US)
  Receive Date: 20210217
  Receipt Date: 20210726
  Transmission Date: 20211014
  Serious: Yes (Hospitalization, Other)
  Sender: FDA-Public Use
  Company Number: US-PFIZER INC-2021137123

PATIENT
  Age: 64 Year
  Sex: Male

DRUGS (2)
  1. INLYTA [Suspect]
     Active Substance: AXITINIB
     Dosage: 5 MG, 2X/DAY
  2. INLYTA [Suspect]
     Active Substance: AXITINIB
     Dosage: 5 MG
     Dates: start: 20201204

REACTIONS (14)
  - Blister [Unknown]
  - Blood pressure diastolic increased [Unknown]
  - Diarrhoea [Unknown]
  - Oral mucosal blistering [Unknown]
  - Glossodynia [Unknown]
  - Pain in extremity [Unknown]
  - Chills [Unknown]
  - Dizziness [Unknown]
  - Oropharyngeal pain [Unknown]
  - Paraesthesia oral [Unknown]
  - Bone pain [Not Recovered/Not Resolved]
  - Thirst [Unknown]
  - Mouth swelling [Unknown]
  - Product dose omission issue [Unknown]

NARRATIVE: CASE EVENT DATE: 2021
